FAERS Safety Report 10705437 (Version 5)
Quarter: 2015Q3

REPORT INFORMATION
  Report Type: Spontaneous
  Country: US (occurrence: US)
  Receive Date: 20150112
  Receipt Date: 20150817
  Transmission Date: 20151125
  Serious: No
  Sender: FDA-Public Use
  Company Number: US-GLAXOSMITHKLINE-A1067287A

PATIENT
  Age: 70 Year
  Sex: Female

DRUGS (12)
  1. ATORVASTATIN [Concomitant]
     Active Substance: ATORVASTATIN
  2. OMEPRAZOLE. [Concomitant]
     Active Substance: OMEPRAZOLE
  3. PROMACTA [Suspect]
     Active Substance: ELTROMBOPAG OLAMINE
     Dosage: 25 MG, U
  4. CALTRATE [Concomitant]
     Active Substance: CALCIUM CARBONATE
  5. PROMACTA [Suspect]
     Active Substance: ELTROMBOPAG OLAMINE
     Indication: IMMUNE THROMBOCYTOPENIC PURPURA
     Dosage: 50 MG, 1D
     Route: 048
     Dates: start: 20140307
  6. PROMACTA [Suspect]
     Active Substance: ELTROMBOPAG OLAMINE
     Indication: PLATELET COUNT DECREASED
     Dosage: UNK
  7. ASPIRIN. [Suspect]
     Active Substance: ASPIRIN
     Indication: BACK PAIN
  8. HYDROCODONE [Concomitant]
     Active Substance: HYDROCODONE
  9. PROMACTA [Suspect]
     Active Substance: ELTROMBOPAG OLAMINE
     Dosage: 25 MG, U
  10. PROMACTA [Suspect]
     Active Substance: ELTROMBOPAG OLAMINE
     Dosage: 50 MG, U
     Dates: start: 201501
  11. TRAZODONE [Concomitant]
     Active Substance: TRAZODONE HYDROCHLORIDE
  12. IBUPROFEN. [Suspect]
     Active Substance: IBUPROFEN
     Indication: BACK PAIN

REACTIONS (5)
  - Drug ineffective [Not Recovered/Not Resolved]
  - Platelet count decreased [Recovered/Resolved]
  - Malaise [Unknown]
  - Platelet count increased [Recovered/Resolved]
  - Influenza [Recovered/Resolved]

NARRATIVE: CASE EVENT DATE: 20140327
